FAERS Safety Report 24367843 (Version 1)
Quarter: 2024Q3

REPORT INFORMATION
  Report Type: Spontaneous
  Country: US (occurrence: None)
  Receive Date: 20240926
  Receipt Date: 20240926
  Transmission Date: 20241017
  Serious: No
  Sender: Public
  Company Number: None

PATIENT
  Age: 22 Year
  Sex: Female

DRUGS (1)
  1. APLISOL [Suspect]
     Active Substance: TUBERCULIN PURIFIED PROTEIN DERIVATIVE
     Dosage: OTHER FREQUENCY : ONCE;?
     Route: 023
     Dates: start: 20240926, end: 20240926

REACTIONS (1)
  - Presyncope [None]

NARRATIVE: CASE EVENT DATE: 20240926
